FAERS Safety Report 8790283 (Version 2)
Quarter: 2015Q3

REPORT INFORMATION
  Report Type: Spontaneous
  Country: US (occurrence: US)
  Receive Date: 20120917
  Receipt Date: 20150731
  Transmission Date: 20151125
  Serious: Yes (Hospitalization, Other)
  Sender: FDA-Public Use
  Company Number: US-BAYER-2012-096116

PATIENT
  Age: 45 Year
  Sex: Female
  Weight: 85.71 kg

DRUGS (18)
  1. ALBUTEROL. [Concomitant]
     Active Substance: ALBUTEROL
     Dosage: EVERY 6 HOURS, PRN
     Route: 045
  2. FAMOTIDINE. [Concomitant]
     Active Substance: FAMOTIDINE
     Dosage: 20 MG, UNK
  3. PRINIVIL [Concomitant]
     Active Substance: LISINOPRIL
  4. GIANVI [Suspect]
     Active Substance: DROSPIRENONE\ETHINYL ESTRADIOL
  5. FLOVENT [Concomitant]
     Active Substance: FLUTICASONE PROPIONATE
     Dosage: 110 MCG
     Route: 045
  6. LISINOPRIL. [Concomitant]
     Active Substance: LISINOPRIL
     Dosage: 40 MG, QD
     Dates: start: 20100115, end: 20110105
  7. AZITHROMYCIN [Concomitant]
     Active Substance: AZITHROMYCIN ANHYDROUS
     Dosage: 250 MG, UNK
  8. NORVASC [Concomitant]
     Active Substance: AMLODIPINE BESYLATE
     Dosage: 5 MG, UNK
     Route: 048
  9. LORATADINE. [Concomitant]
     Active Substance: LORATADINE
     Dosage: 10 MG, QD
  10. NAPROSYN [Concomitant]
     Active Substance: NAPROXEN
     Dosage: 500 MG, BID
  11. FERRITIN [Concomitant]
     Active Substance: FERRITIN
  12. LOPRESSOR [Concomitant]
     Active Substance: METOPROLOL TARTRATE
  13. AMLODIPINE BESYLATE. [Concomitant]
     Active Substance: AMLODIPINE BESYLATE
     Dosage: 5 MG, UNK
     Route: 048
  14. PROAIR HFA [Concomitant]
     Active Substance: ALBUTEROL SULFATE
     Dosage: 90 ?G, UNK
     Route: 045
  15. PRILOSEC [Concomitant]
     Active Substance: OMEPRAZOLE MAGNESIUM
  16. YAZ [Suspect]
     Active Substance: DROSPIRENONE\ETHINYL ESTRADIOL
  17. YASMIN [Suspect]
     Active Substance: DROSPIRENONE\ETHINYL ESTRADIOL
  18. OCELLA [Suspect]
     Active Substance: DROSPIRENONE\ETHINYL ESTRADIOL

REACTIONS (3)
  - Pulmonary embolism [None]
  - Deep vein thrombosis [None]
  - Cholelithiasis [None]

NARRATIVE: CASE EVENT DATE: 20101209
